FAERS Safety Report 12540324 (Version 3)
Quarter: 2017Q4

REPORT INFORMATION
  Report Type: Report from Study
  Country: NO (occurrence: NO)
  Receive Date: 20160708
  Receipt Date: 20171129
  Transmission Date: 20180320
  Serious: Yes (Hospitalization)
  Sender: FDA-Public Use
  Company Number: NO-CELGENEUS-NOR-2016066251

PATIENT
  Age: 51 Year
  Sex: Male

DRUGS (7)
  1. SELOZOK [Concomitant]
     Active Substance: METOPROLOL SUCCINATE
     Indication: HYPERTENSION
     Dosage: 25MG
     Route: 065
     Dates: start: 20160215
  2. VALTREX [Concomitant]
     Active Substance: VALACYCLOVIR HYDROCHLORIDE
     Indication: ANTIVIRAL PROPHYLAXIS
     Dosage: 500MG
     Route: 065
     Dates: start: 20150604
  3. RITUXIMAB. [Suspect]
     Active Substance: RITUXIMAB
     Dosage: OUTSIDE STUDY
     Route: 065
  4. REVLIMID [Suspect]
     Active Substance: LENALIDOMIDE
     Indication: MANTLE CELL LYMPHOMA
     Route: 048
     Dates: start: 20160520, end: 20160602
  5. IBRUTINIB [Suspect]
     Active Substance: IBRUTINIB
     Indication: MANTLE CELL LYMPHOMA
     Route: 065
     Dates: start: 20160520, end: 20160602
  6. DOPSON [Concomitant]
     Indication: ANTIFUNGAL PROPHYLAXIS
     Dosage: 50MG
     Route: 065
     Dates: start: 20160215
  7. RITUXIMAB. [Suspect]
     Active Substance: RITUXIMAB
     Indication: MANTLE CELL LYMPHOMA
     Route: 065
     Dates: start: 20160520, end: 20160603

REACTIONS (1)
  - Graft versus host disease [Recovered/Resolved]

NARRATIVE: CASE EVENT DATE: 20160603
